FAERS Safety Report 6655640-6 (Version None)
Quarter: 2010Q1

REPORT INFORMATION
  Report Type: 
  Country: None (occurrence: None)
  Receive Date: 20100317
  Receipt Date: 20100121
  Transmission Date: 20100710
  Serious: No
  Sender: FDA-Public Use
  Company Number: DSA_42425_2010

PATIENT
  Sex: Female

DRUGS (7)
  1. XENAZINE [Suspect]
     Indication: TARDIVE DYSKINESIA
     Dosage: 12.5 MG QD, 12.5 MG BID, 12.5 MG TID
     Dates: start: 20091201, end: 20100101
  2. XENAZINE [Suspect]
     Indication: TARDIVE DYSKINESIA
     Dosage: 12.5 MG QD, 12.5 MG BID, 12.5 MG TID
     Dates: start: 20100101, end: 20100101
  3. XENAZINE [Suspect]
     Indication: TARDIVE DYSKINESIA
     Dosage: 12.5 MG QD, 12.5 MG BID, 12.5 MG TID
     Dates: start: 20100101, end: 20100120
  4. CELEXA [Concomitant]
  5. LORAZEPAM [Concomitant]
  6. TRILEPTAL [Concomitant]
  7. TRAMADOL HCL [Concomitant]

REACTIONS (2)
  - CONDITION AGGRAVATED [None]
  - DEPRESSION [None]
